FAERS Safety Report 5519944-2 (Version None)
Quarter: 2007Q4

REPORT INFORMATION
  Report Type: 
  Country: None (occurrence: None)
  Receive Date: 20071116
  Receipt Date: 20071107
  Transmission Date: 20080405
  Serious: Yes (Hospitalization)
  Sender: FDA-Public Use
  Company Number: FR-ASTRAZENECA-2007CG01571

PATIENT
  Age: 16668 Day
  Sex: Female
  Weight: 70 kg

DRUGS (7)
  1. ARIMIDEX [Suspect]
     Indication: BREAST CANCER IN SITU
     Route: 048
     Dates: start: 20060801, end: 20070602
  2. ABILIFY [Suspect]
     Indication: SCHIZOPHRENIA
     Route: 048
     Dates: start: 20070301, end: 20070602
  3. RAMIPRIL [Suspect]
     Route: 048
     Dates: end: 20070602
  4. RIVOTRIL [Suspect]
     Indication: MYOCLONUS
     Route: 048
     Dates: start: 20061001
  5. PREVISCAN [Suspect]
     Indication: VENOUS THROMBOSIS
     Route: 048
     Dates: start: 20060601, end: 20070602
  6. HERCEPTIN [Suspect]
     Indication: BREAST CANCER IN SITU
     Route: 042
     Dates: start: 20060801, end: 20070602
  7. ZYPREXA [Concomitant]
     Indication: SCHIZOPHRENIA
     Dates: end: 20070301

REACTIONS (1)
  - BONE MARROW FAILURE [None]
